FAERS Safety Report 8989020 (Version 1)
Quarter: 2012Q4

REPORT INFORMATION
  Report Type: 
  Country: US (occurrence: US)
  Receive Date: 20121228
  Receipt Date: 20121228
  Transmission Date: 20130627
  Serious: Yes (Hospitalization)
  Sender: FDA-Public Use
  Company Number: PHEH2012US025355

PATIENT
  Age: 50 Year
  Sex: Female

DRUGS (1)
  1. TYZEKA [Suspect]
     Indication: CHRONIC HEPATITIS B
     Dosage: daily
     Route: 048
     Dates: start: 20120809

REACTIONS (1)
  - Migraine [Unknown]
